FAERS Safety Report 11320017 (Version 1)
Quarter: 2015Q3

REPORT INFORMATION
  Report Type: Spontaneous
  Country: US (occurrence: US)
  Receive Date: 20150729
  Receipt Date: 20150729
  Transmission Date: 20151125
  Serious: Yes (Other)
  Sender: FDA-Public Use
  Company Number: US-PFIZER INC-2015249683

PATIENT
  Age: 64 Year
  Sex: Male

DRUGS (1)
  1. ZOLOFT [Suspect]
     Active Substance: SERTRALINE HYDROCHLORIDE
     Indication: DEPRESSION
     Dosage: UNK

REACTIONS (5)
  - Neuropathy peripheral [Unknown]
  - Drug ineffective [Unknown]
  - Diabetes mellitus [Unknown]
  - Renal disorder [Unknown]
  - Blood glucose increased [Unknown]
